FAERS Safety Report 17353092 (Version 1)
Quarter: 2020Q1

REPORT INFORMATION
  Report Type: Spontaneous
  Country: NL (occurrence: NL)
  Receive Date: 20200131
  Receipt Date: 20200131
  Transmission Date: 20200409
  Serious: Yes (Hospitalization)
  Sender: FDA-Public Use
  Company Number: NL-TEVA-2019-NL-1149675

PATIENT
  Age: 52 Year
  Sex: Female

DRUGS (4)
  1. CYCLOPHOSPHAMIDE. [Suspect]
     Active Substance: CYCLOPHOSPHAMIDE
     Route: 065
  2. LONQUEX 6 MG [Suspect]
     Active Substance: LIPEGFILGRASTIM
     Dosage: CYCLICAL
     Route: 058
     Dates: start: 20190815, end: 20190815
  3. ANTHRACYCLINE [Suspect]
     Active Substance: UNSPECIFIED INGREDIENT
     Route: 065
  4. PACLITAXEL. [Suspect]
     Active Substance: PACLITAXEL
     Route: 065

REACTIONS (4)
  - Malaise [Recovering/Resolving]
  - Fatigue [Recovering/Resolving]
  - Body temperature increased [Recovering/Resolving]
  - Bone pain [Recovered/Resolved]

NARRATIVE: CASE EVENT DATE: 20190814
